FAERS Safety Report 18478897 (Version 3)
Quarter: 2022Q4

REPORT INFORMATION
  Report Type: Spontaneous
  Country: DE (occurrence: DE)
  Receive Date: 20201109
  Receipt Date: 20221217
  Transmission Date: 20230112
  Serious: Yes (Other)
  Sender: FDA-Public Use
  Company Number: DE-AMGEN-DEUNI2020126761

PATIENT
  Age: 59 Year
  Sex: Male
  Weight: 64 kg

DRUGS (43)
  1. LEUCOVORIN [Suspect]
     Active Substance: LEUCOVORIN
     Indication: Colorectal cancer metastatic
     Dosage: 350 MILLIGRAM
     Route: 065
     Dates: start: 20200427
  2. LEUCOVORIN [Suspect]
     Active Substance: LEUCOVORIN
     Dosage: 365 MILLIGRAM
     Route: 065
     Dates: start: 20200706
  3. LEUCOVORIN [Suspect]
     Active Substance: LEUCOVORIN
     Dosage: 740 MILLIGRAM
     Route: 065
     Dates: start: 20200803
  4. LEUCOVORIN [Suspect]
     Active Substance: LEUCOVORIN
     Dosage: 730 MILLIGRAM
     Route: 065
     Dates: start: 20200817
  5. LEUCOVORIN [Suspect]
     Active Substance: LEUCOVORIN
     Dosage: 710 MILLIGRAM
     Route: 065
     Dates: start: 20200928
  6. LEUCOVORIN [Suspect]
     Active Substance: LEUCOVORIN
     Dosage: 700 MILLIGRAM
     Route: 065
     Dates: start: 20201012
  7. LEUCOVORIN [Suspect]
     Active Substance: LEUCOVORIN
     Dosage: 690 MILLIGRAM
     Route: 065
     Dates: start: 20201026
  8. LEUCOVORIN [Suspect]
     Active Substance: LEUCOVORIN
     Dosage: 50 MILLIGRAM
     Route: 065
     Dates: start: 20210804
  9. LEUCOVORIN [Suspect]
     Active Substance: LEUCOVORIN
     Dosage: 680 MILLIGRAM
     Route: 065
     Dates: start: 20201214
  10. OXALIPLATIN [Suspect]
     Active Substance: OXALIPLATIN
     Indication: Colorectal cancer metastatic
     Dosage: 150 MILLIGRAM
     Route: 065
     Dates: start: 20200427
  11. OXALIPLATIN [Suspect]
     Active Substance: OXALIPLATIN
     Dosage: 155 MILLIGRAM
     Route: 065
     Dates: start: 20200706
  12. FLUOROURACIL [Suspect]
     Active Substance: FLUOROURACIL
     Indication: Colorectal cancer metastatic
     Dosage: 2110 MILLIGRAM
     Route: 042
     Dates: start: 20200427
  13. FLUOROURACIL [Suspect]
     Active Substance: FLUOROURACIL
     Dosage: 700 MILLIGRAM
     Route: 040
     Dates: start: 20200427
  14. FLUOROURACIL [Suspect]
     Active Substance: FLUOROURACIL
     Dosage: 2125 MILLIGRAM
     Route: 042
     Dates: start: 20200608
  15. FLUOROURACIL [Suspect]
     Active Substance: FLUOROURACIL
     Dosage: 735 MILLIGRAM
     Route: 040
     Dates: start: 20200706
  16. FLUOROURACIL [Suspect]
     Active Substance: FLUOROURACIL
     Dosage: 2220 MILLIGRAM
     Route: 042
     Dates: start: 20200706
  17. FLUOROURACIL [Suspect]
     Active Substance: FLUOROURACIL
     Dosage: 740 MILLIGRAM
     Route: 040
     Dates: start: 20200803
  18. FLUOROURACIL [Suspect]
     Active Substance: FLUOROURACIL
     Dosage: 4440 MILLIGRAM
     Route: 042
     Dates: start: 20200803
  19. FLUOROURACIL [Suspect]
     Active Substance: FLUOROURACIL
     Dosage: 4370 MILLIGRAM
     Route: 042
     Dates: start: 20200817
  20. FLUOROURACIL [Suspect]
     Active Substance: FLUOROURACIL
     Dosage: 730 MILLIGRAM
     Route: 040
     Dates: start: 20200817
  21. FLUOROURACIL [Suspect]
     Active Substance: FLUOROURACIL
     Dosage: 710 MILLIGRAM
     Route: 040
     Dates: start: 20200928
  22. FLUOROURACIL [Suspect]
     Active Substance: FLUOROURACIL
     Dosage: 4270 MILLIGRAM
     Route: 042
     Dates: start: 20200928
  23. FLUOROURACIL [Suspect]
     Active Substance: FLUOROURACIL
     Dosage: 4225 MILLIGRAM
     Route: 042
     Dates: start: 20201012
  24. FLUOROURACIL [Suspect]
     Active Substance: FLUOROURACIL
     Dosage: 700 MILLIGRAM
     Route: 040
     Dates: start: 20201012
  25. FLUOROURACIL [Suspect]
     Active Substance: FLUOROURACIL
     Dosage: 4045 MILLIGRAM
     Route: 042
     Dates: start: 20201214
  26. FLUOROURACIL [Suspect]
     Active Substance: FLUOROURACIL
     Dosage: 680 MILLIGRAM
     Route: 042
     Dates: start: 20201214
  27. FLUOROURACIL [Suspect]
     Active Substance: FLUOROURACIL
     Dosage: 690 MILLIGRAM
     Route: 042
     Dates: start: 20201026
  28. FLUOROURACIL [Suspect]
     Active Substance: FLUOROURACIL
     Dosage: 4320 MILLIGRAM
     Route: 042
     Dates: start: 20210706
  29. FLUOROURACIL [Suspect]
     Active Substance: FLUOROURACIL
     Dosage: 4150 MILLIGRAM
     Route: 042
     Dates: start: 20201026
  30. FLUOROURACIL [Suspect]
     Active Substance: FLUOROURACIL
     Dosage: 4250 MILLIGRAM
     Route: 042
  31. VECTIBIX [Suspect]
     Active Substance: PANITUMUMAB
     Indication: Colorectal cancer metastatic
     Dosage: 380 MILLIGRAM
     Route: 042
     Dates: start: 20200427
  32. VECTIBIX [Suspect]
     Active Substance: PANITUMUMAB
     Dosage: 380 MILLIGRAM
     Route: 042
     Dates: start: 20200608
  33. VECTIBIX [Suspect]
     Active Substance: PANITUMUMAB
     Dosage: 425 MILLIGRAM
     Route: 042
     Dates: start: 20200706
  34. VECTIBIX [Suspect]
     Active Substance: PANITUMUMAB
     Dosage: 385 MILLIGRAM
     Route: 042
     Dates: start: 20200708
  35. VECTIBIX [Suspect]
     Active Substance: PANITUMUMAB
     Dosage: 400 MILLIGRAM
     Route: 042
     Dates: start: 20200817
  36. VECTIBIX [Suspect]
     Active Substance: PANITUMUMAB
     Dosage: 390 MILLIGRAM
     Route: 042
     Dates: start: 20200928
  37. VECTIBIX [Suspect]
     Active Substance: PANITUMUMAB
     Dosage: 380 MILLIGRAM
     Route: 042
     Dates: start: 20201012
  38. VECTIBIX [Suspect]
     Active Substance: PANITUMUMAB
     Dosage: 335 MILLIGRAM
     Route: 042
     Dates: start: 20211103
  39. VECTIBIX [Suspect]
     Active Substance: PANITUMUMAB
     Dosage: 400 MILLIGRAM
     Route: 042
     Dates: start: 20200803
  40. VECTIBIX [Suspect]
     Active Substance: PANITUMUMAB
     Dosage: 365 MILLIGRAM
     Route: 042
     Dates: start: 20201012
  41. VECTIBIX [Suspect]
     Active Substance: PANITUMUMAB
     Dosage: 395 MILLIGRAM
     Route: 042
     Dates: start: 20210706
  42. VECTIBIX [Suspect]
     Active Substance: PANITUMUMAB
     Dosage: 420 MILLIGRAM
     Route: 042
     Dates: start: 20200622
  43. VECTIBIX [Suspect]
     Active Substance: PANITUMUMAB
     Dosage: 350 MILLIGRAM
     Route: 042
     Dates: start: 20201214

REACTIONS (3)
  - Blood potassium decreased [Recovered/Resolved]
  - Weight decreased [Recovered/Resolved]
  - Neuropathy peripheral [Not Recovered/Not Resolved]

NARRATIVE: CASE EVENT DATE: 20200801
